FAERS Safety Report 9083503 (Version 3)
Quarter: 2013Q1

REPORT INFORMATION
  Report Type: Spontaneous
  Country: MX (occurrence: MX)
  Receive Date: 20130218
  Receipt Date: 20130227
  Transmission Date: 20140127
  Serious: Yes (Other)
  Sender: FDA-Public Use
  Company Number: PHHY2013MX015210

PATIENT
  Age: 81 Year
  Sex: Female

DRUGS (5)
  1. FORADIL [Suspect]
     Indication: BRONCHITIS CHRONIC
     Dosage: UNK (12 MCG)
     Route: 048
     Dates: start: 201207
  2. NORVASC [Concomitant]
     Indication: BLOOD PRESSURE
     Dosage: 1 DF DAILY
     Dates: start: 2008
  3. DAFLON [Concomitant]
     Dosage: 1 DF DAILY
     Dates: start: 201302
  4. PASPAT [Concomitant]
     Dosage: 1 DF, Q8H
     Dates: start: 201201
  5. STERIMAR [Concomitant]
     Dosage: 2 DF DAILY

REACTIONS (5)
  - Inguinal hernia [Recovered/Resolved]
  - Abdominal strangulated hernia [Recovered/Resolved]
  - Hernia pain [Recovered/Resolved]
  - Nasal dryness [Recovered/Resolved]
  - Dry throat [Recovered/Resolved]
